FAERS Safety Report 8509364-0 (Version None)
Quarter: 2012Q3

REPORT INFORMATION
  Report Type: 
  Country: None (occurrence: None)
  Receive Date: 20120713
  Receipt Date: 20120629
  Transmission Date: 20120928
  Serious: Yes (Hospitalization)
  Sender: FDA-Public Use
  Company Number: FR-009507513-1207FRA00013

PATIENT

DRUGS (13)
  1. DIAMICRON [Concomitant]
     Indication: TYPE 2 DIABETES MELLITUS
     Dosage: 30 MG, QID
     Route: 048
     Dates: end: 20110430
  2. BISOPROLOL FUMARATE [Concomitant]
     Indication: HYPERTENSION
     Dosage: 1.25 MG, BID
     Route: 048
  3. GLUCOPHAGE [Concomitant]
     Indication: GOUT
     Dosage: 1 G, BID
     Route: 048
     Dates: end: 20110430
  4. LASIX [Suspect]
     Indication: CARDIOMYOPATHY
  5. JANUVIA [Suspect]
     Dosage: 100 MG, QD
     Route: 048
     Dates: end: 20110430
  6. COLCHIMAX (COLCHICINE (+) OPIUM, POWDERED (+) TIEMONIUM METHYLSULFATE) [Suspect]
     Dosage: UNK
     Dates: start: 20110501
  7. LASIX [Suspect]
     Indication: HYPERTENSION
     Dosage: 40 TO 120
     Route: 048
  8. SPIRONOLACTONE [Suspect]
     Indication: CARDIOMYOPATHY
  9. CAPTOPRIL [Concomitant]
     Indication: HYPERTENSION
     Dosage: 25 MG, BID
     Route: 048
  10. SPIRONOLACTONE [Suspect]
     Indication: HYPERTENSION
     Dosage: 25 MG, QD
     Route: 048
  11. ATORVASTATIN [Concomitant]
     Indication: DYSLIPIDAEMIA
     Dosage: 20 MG, QD
     Route: 048
  12. ALLOPURINOL [Concomitant]
     Indication: GOUT
     Dosage: 100 MG, QD
     Route: 048
  13. COLCHIMAX (COLCHICINE (+) OPIUM, POWDERED (+) TIEMONIUM METHYLSULFATE) [Suspect]
     Indication: GOUT
     Dosage: UNK
     Dates: start: 20110428, end: 20110501

REACTIONS (3)
  - VOMITING [None]
  - DIABETES MELLITUS INADEQUATE CONTROL [None]
  - RENAL FAILURE [None]
